APPROVED DRUG PRODUCT: INDOMETHACIN SODIUM
Active Ingredient: INDOMETHACIN SODIUM
Strength: EQ 1MG BASE/VIAL
Dosage Form/Route: INJECTABLE;INJECTION
Application: A078713 | Product #001
Applicant: HIKMA PHARMACEUTICALS USA INC
Approved: Jul 16, 2008 | RLD: No | RS: No | Type: DISCN